FAERS Safety Report 9648382 (Version 1)
Quarter: 2013Q4

REPORT INFORMATION
  Report Type: Spontaneous
  Country: US (occurrence: None)
  Receive Date: 20131025
  Receipt Date: 20131025
  Transmission Date: 20140711
  Serious: Yes (Life-Threatening)
  Sender: FDA-Public Use
  Company Number: None

PATIENT
  Age: 48 Year
  Sex: Female
  Weight: 97.52 kg

DRUGS (1)
  1. BACTRIM DS [Suspect]
     Indication: URINARY TRACT INFECTION
     Route: 048
     Dates: start: 20120404, end: 20120408

REACTIONS (8)
  - Malaise [None]
  - Pancreatitis [None]
  - Hepatitis [None]
  - Musculoskeletal chest pain [None]
  - Abnormal faeces [None]
  - Hypersensitivity [None]
  - Pain [None]
  - Gastrointestinal disorder [None]
